FAERS Safety Report 21937041 (Version 1)
Quarter: 2023Q1

REPORT INFORMATION
  Report Type: Spontaneous
  Country: US (occurrence: None)
  Receive Date: 20230131
  Receipt Date: 20230131
  Transmission Date: 20230418
  Serious: Yes (unspecified)
  Sender: FDA-Public Use
  Company Number: None

PATIENT
  Age: 72 Year
  Sex: Female
  Weight: 54.9 kg

DRUGS (1)
  1. PHENAZOPYRIDINE HCL [Suspect]
     Active Substance: PHENAZOPYRIDINE HYDROCHLORIDE
     Indication: Bladder spasm
     Dosage: FREQUENCY : 3 TIMES A DAY;?
     Route: 048
     Dates: start: 20230130, end: 20230131

REACTIONS (4)
  - Chromaturia [None]
  - Abdominal pain upper [None]
  - Diarrhoea [None]
  - Vomiting [None]

NARRATIVE: CASE EVENT DATE: 20230130
